FAERS Safety Report 23166889 (Version 1)
Quarter: 2023Q4

REPORT INFORMATION
  Report Type: Spontaneous
  Country: NP (occurrence: NP)
  Receive Date: 20231109
  Receipt Date: 20231109
  Transmission Date: 20240110
  Serious: Yes (Other)
  Sender: FDA-Public Use
  Company Number: NP-SUN PHARMACEUTICAL INDUSTRIES LTD-2023RR-417081

PATIENT
  Age: 16 Year
  Sex: Male

DRUGS (2)
  1. LEVETIRACETAM [Suspect]
     Active Substance: LEVETIRACETAM
     Indication: Seizure
     Dosage: 500 MILLIGRAM, BID
     Route: 065
  2. VALPROATE [Suspect]
     Active Substance: VALPROIC ACID
     Indication: Seizure
     Dosage: 800 MG FOR A YEAR
     Route: 065

REACTIONS (8)
  - Therapeutic product effect incomplete [Unknown]
  - Drooling [Unknown]
  - Depressed level of consciousness [Unknown]
  - Somnolence [Unknown]
  - Agitation [Unknown]
  - Sedation [Unknown]
  - Restlessness [Unknown]
  - Psychotic disorder [Unknown]
